FAERS Safety Report 15951228 (Version 2)
Quarter: 2019Q2

REPORT INFORMATION
  Report Type: Spontaneous
  Country: US (occurrence: US)
  Receive Date: 20190212
  Receipt Date: 20190403
  Transmission Date: 20190711
  Serious: Yes (Other)
  Sender: FDA-Public Use
  Company Number: US-PFIZER INC-2019062689

PATIENT
  Age: 73 Year
  Sex: Female

DRUGS (1)
  1. XELJANZ XR [Suspect]
     Active Substance: TOFACITINIB CITRATE
     Dosage: 11 MG, UNK

REACTIONS (6)
  - Rheumatoid arthritis [Unknown]
  - Sensitivity to weather change [Unknown]
  - Rhinorrhoea [Unknown]
  - Postmenopausal haemorrhage [Recovered/Resolved]
  - Arthralgia [Unknown]
  - Tooth loss [Unknown]
